FAERS Safety Report 9871060 (Version 2)
Quarter: 2014Q1

REPORT INFORMATION
  Report Type: Spontaneous
  Country: BE (occurrence: BE)
  Receive Date: 20140205
  Receipt Date: 20140226
  Transmission Date: 20141002
  Serious: Yes (Other)
  Sender: FDA-Public Use
  Company Number: BE-MYLANLABS-2014S1001760

PATIENT
  Age: 10 Month
  Sex: Male

DRUGS (2)
  1. MONTELUKAST [Suspect]
     Indication: ASTHMA
     Route: 048
  2. SERETIDE [Concomitant]
     Indication: PRODUCT USED FOR UNKNOWN INDICATION

REACTIONS (5)
  - Off label use [Unknown]
  - Anxiety [Recovering/Resolving]
  - Insomnia [Recovering/Resolving]
  - Thirst [Recovering/Resolving]
  - Aggression [Recovering/Resolving]
